FAERS Safety Report 4816207-5 (Version None)
Quarter: 2005Q4

REPORT INFORMATION
  Report Type: 
  Country: None (occurrence: None)
  Receive Date: 20051026
  Receipt Date: 20051013
  Transmission Date: 20060501
  Serious: Yes (Disabling)
  Sender: FDA-Public Use
  Company Number: HQWYE035814OCT05

PATIENT
  Age: 43 Year
  Sex: Male

DRUGS (2)
  1. INDERAL LA [Suspect]
     Dosage: 20 MG 3X PER 1 DAY; ORAL
     Route: 048
     Dates: start: 20050912, end: 20050914
  2. XANAX [Suspect]
     Dosage: 0.25 MG 3X PER 1 DAY; ORAL
     Route: 048
     Dates: end: 20050912

REACTIONS (1)
  - DYSKINESIA [None]
